FAERS Safety Report 8714702 (Version 2)
Quarter: 2012Q4

REPORT INFORMATION
  Report Type: 
  Country: AU (occurrence: AU)
  Receive Date: 20120809
  Receipt Date: 20120828
  Transmission Date: 20130627
  Serious: Yes (Other)
  Sender: FDA-Public Use
  Company Number: AU-SANOFI-AVENTIS-2012SA054114

PATIENT
  Age: 59 Year
  Sex: Male

DRUGS (14)
  1. LANTUS [Suspect]
     Indication: DRUG USE FOR UNKNOWN INDICATION
     Route: 058
     Dates: start: 20090101
  2. LANTUS [Suspect]
     Indication: DRUG USE FOR UNKNOWN INDICATION
     Route: 058
  3. APIDRA [Concomitant]
     Indication: DIABETES
     Dosage: before meals Dose:10 unit(s)
     Route: 058
  4. PERINDOPRIL ERBUMINE [Concomitant]
     Indication: HYPERTENSION
     Route: 048
  5. VYTORIN [Concomitant]
     Route: 048
  6. AMLODIPINE BESILATE [Concomitant]
     Dosage: manufacturer: sandoz
     Route: 048
  7. WARFARIN [Concomitant]
     Route: 048
  8. AMLODIPINE [Concomitant]
     Dosage: frequency: 1 in the morning
     Route: 048
  9. ACETYLSALICYLIC ACID [Concomitant]
     Route: 048
  10. DIABEX [Concomitant]
     Route: 048
  11. FERROUS FUMARATE/FOLIC ACID [Concomitant]
     Route: 048
  12. LIPIDIL [Concomitant]
     Route: 048
  13. METOHEXAL [Concomitant]
     Route: 048
  14. NITROLINGUAL PUMPSPRAY [Concomitant]
     Route: 060

REACTIONS (5)
  - Aortic valve replacement [Recovered/Resolved with Sequelae]
  - Cerebrovascular accident [Recovered/Resolved with Sequelae]
  - Bradyarrhythmia [Recovered/Resolved with Sequelae]
  - Cardiac pacemaker insertion [Recovered/Resolved with Sequelae]
  - Blindness [Unknown]
